FAERS Safety Report 8607159 (Version 5)
Quarter: 2014Q1

REPORT INFORMATION
  Report Type: Spontaneous
  Country: US (occurrence: US)
  Receive Date: 20120611
  Receipt Date: 20140127
  Transmission Date: 20141002
  Serious: Yes (Hospitalization, Disabling, Other)
  Sender: FDA-Public Use
  Company Number: US-ASTRAZENECA-2012SE35437

PATIENT
  Age: 61 Year
  Sex: Female
  Weight: 45.4 kg

DRUGS (22)
  1. NEXIUM [Suspect]
     Indication: GASTROOESOPHAGEAL REFLUX DISEASE
     Route: 048
     Dates: start: 2001
  2. NEXIUM [Suspect]
     Indication: GASTROOESOPHAGEAL REFLUX DISEASE
     Route: 048
     Dates: start: 20030103
  3. PRILOSEC OTC [Suspect]
     Route: 048
     Dates: start: 1990
  4. IBUPROFEN [Concomitant]
     Dates: start: 20020108
  5. PROPOXY-N/APAP [Concomitant]
     Dosage: 100-650
     Dates: start: 20020126
  6. CIPRO [Concomitant]
     Dates: start: 20021003
  7. MENEST [Concomitant]
     Dates: start: 20021008
  8. ULTRACET [Concomitant]
     Dates: start: 20021127
  9. HYDROC/APAP [Concomitant]
     Dosage: 5/500 MG
     Dates: start: 20021205
  10. ACETAMINOPHEN [Concomitant]
     Dates: start: 20021206
  11. PAXIL [Concomitant]
     Dates: start: 20030103
  12. METOCLOPRAMIDE [Concomitant]
     Dates: start: 20030107
  13. PREVACID [Concomitant]
     Dates: start: 1980, end: 2000
  14. ZANTAC [Concomitant]
     Dates: start: 1982, end: 2002
  15. TAGAMET [Concomitant]
     Dates: start: 1980, end: 1989
  16. PEPCID [Concomitant]
     Dates: start: 1980, end: 2000
  17. SYNTHROID [Concomitant]
     Indication: HYPOTHYROIDISM
  18. LOW DOSE ASPIRIN [Concomitant]
     Indication: ANTICOAGULANT THERAPY
  19. STOOL SOFTENER [Concomitant]
     Indication: CONSTIPATION
  20. VITAMIN D [Concomitant]
     Indication: GENERAL PHYSICAL HEALTH DETERIORATION
  21. HRT [Concomitant]
  22. PREDNISONE [Concomitant]
     Route: 048
     Dates: start: 20080522

REACTIONS (21)
  - Osteoporosis [Unknown]
  - Spinal fracture [Unknown]
  - Hip fracture [Unknown]
  - Squamous cell carcinoma [Unknown]
  - Back pain [Unknown]
  - Emotional distress [Unknown]
  - Gallbladder disorder [Unknown]
  - Cardiac disorder [Unknown]
  - Cerebral haemorrhage [Unknown]
  - Pneumonia [Unknown]
  - Pelvic fracture [Unknown]
  - Lumbar vertebral fracture [Unknown]
  - Thoracic vertebral fracture [Unknown]
  - Rib fracture [Unknown]
  - Compression fracture [Unknown]
  - Foot fracture [Unknown]
  - Multiple fractures [Unknown]
  - Anxiety [Unknown]
  - Osteoarthritis [Unknown]
  - Osteopenia [Unknown]
  - Depression [Unknown]
